FAERS Safety Report 11519422 (Version 1)
Quarter: 2015Q3

REPORT INFORMATION
  Report Type: Spontaneous
  Country: TR (occurrence: TR)
  Receive Date: 20150918
  Receipt Date: 20150918
  Transmission Date: 20151125
  Serious: Yes (Hospitalization)
  Sender: FDA-Public Use
  Company Number: TR-HOSPIRA-3002306

PATIENT
  Age: 43 Year
  Sex: Male

DRUGS (4)
  1. IFOSFAMIDE. [Suspect]
     Active Substance: IFOSFAMIDE
     Indication: REFRACTORY CANCER
     Dosage: ON DAYS 2-5, EVERY 21 DAYS
  2. CISPLATIN. [Suspect]
     Active Substance: CISPLATIN
     Indication: REFRACTORY CANCER
     Dosage: DAYS 2-5, EVERY 21 DAYS
  3. MESNA. [Suspect]
     Active Substance: MESNA
     Indication: REFRACTORY CANCER
     Dosage: DAYS 2-5, EVERY 21 DAYS
  4. PACLITAXEL. [Suspect]
     Active Substance: PACLITAXEL
     Indication: REFRACTORY CANCER

REACTIONS (2)
  - Thrombotic thrombocytopenic purpura [Recovered/Resolved]
  - Febrile neutropenia [Unknown]
